FAERS Safety Report 5272457-8 (Version None)
Quarter: 2007Q1

REPORT INFORMATION
  Report Type: 
  Country: None (occurrence: None)
  Receive Date: 20070320
  Receipt Date: 20070320
  Transmission Date: 20070707
  Serious: Yes (Other)
  Sender: FDA-Public Use
  Company Number: None

PATIENT
  Age: 89 Year
  Sex: Female
  Weight: 63.5036 kg

DRUGS (1)
  1. APPLE SMOOTHIE BARIUM SULFATE 2.1%W.V 2.0%W.V -450ML- EZEM INC. [Suspect]
     Indication: ABDOMINAL PAIN
     Dosage: 450ML EVENING PRIOR TO AM CT 1 PO
     Route: 048
     Dates: start: 20070228, end: 20070301

REACTIONS (4)
  - CONTRAST MEDIA REACTION [None]
  - PHARMACEUTICAL PRODUCT COMPLAINT [None]
  - PRURITUS [None]
  - URTICARIA [None]
